FAERS Safety Report 5093418-8 (Version None)
Quarter: 2006Q3

REPORT INFORMATION
  Report Type: 
  Country: None (occurrence: None)
  Receive Date: 20060829
  Receipt Date: 20060816
  Transmission Date: 20061208
  Serious: Yes (Hospitalization)
  Sender: FDA-Public Use
  Company Number: 2006-144039-NL

PATIENT
  Age: 86 Year
  Sex: Female

DRUGS (7)
  1. DANAPAROID SODIUM [Suspect]
     Dosage: 3500 IU/1500 IU
     Dates: start: 20060403, end: 20060424
  2. DANAPAROID SODIUM [Suspect]
     Dosage: 3500 IU/1500 IU
     Dates: start: 20060424, end: 20060615
  3. OMEPRAZOLE [Concomitant]
  4. PAROXETINE HYDROCHLORIDE [Concomitant]
  5. FOLIC ACID [Concomitant]
  6. FERROUS SULFATE TAB [Concomitant]
  7. BUFLOMEDIL HYDROCHLORIDE [Concomitant]

REACTIONS (3)
  - ABDOMINAL HAEMATOMA [None]
  - PANCYTOPENIA [None]
  - PLATELET COUNT INCREASED [None]
